FAERS Safety Report 21911189 (Version 1)
Quarter: 2023Q1

REPORT INFORMATION
  Report Type: Spontaneous
  Country: US (occurrence: None)
  Receive Date: 20230125
  Receipt Date: 20230125
  Transmission Date: 20230417
  Serious: Yes (Hospitalization)
  Sender: FDA-Public Use
  Company Number: None

PATIENT
  Sex: Female

DRUGS (2)
  1. XELODA [Suspect]
     Active Substance: CAPECITABINE
     Indication: Breast cancer female
     Dosage: OTHER FREQUENCY : BID FOR 14 DAYS;?
     Route: 048
     Dates: start: 20201216
  2. TUKYSA [Concomitant]
     Active Substance: TUCATINIB
     Dates: start: 20201216

REACTIONS (2)
  - Seizure [None]
  - Therapy interrupted [None]
